FAERS Safety Report 25996339 (Version 1)
Quarter: 2025Q4

REPORT INFORMATION
  Report Type: Spontaneous
  Country: US (occurrence: US)
  Receive Date: 20251104
  Receipt Date: 20251104
  Transmission Date: 20260117
  Serious: No
  Sender: ROCHE
  Company Number: US-ROCHE-10000418628

PATIENT
  Age: 70 Year
  Sex: Male
  Weight: 74.84 kg

DRUGS (4)
  1. XOLAIR [Suspect]
     Active Substance: OMALIZUMAB
     Indication: Dermatitis atopic
     Dosage: STRENGTH: 300MG/2ML
     Route: 058
     Dates: start: 202507
  2. XOLAIR [Suspect]
     Active Substance: OMALIZUMAB
     Indication: Food allergy
     Route: 058
     Dates: start: 2025
  3. FEXOFENADINE [Concomitant]
     Active Substance: FEXOFENADINE HYDROCHLORIDE
     Route: 048
     Dates: start: 2025
  4. BENADRYL [Concomitant]
     Active Substance: DIPHENHYDRAMINE HYDROCHLORIDE

REACTIONS (9)
  - Accidental exposure to product [Unknown]
  - Off label use [Unknown]
  - No adverse event [Unknown]
  - Product dose omission issue [Unknown]
  - Inappropriate schedule of product administration [Unknown]
  - Product communication issue [Unknown]
  - Wrong technique in product usage process [Unknown]
  - Device issue [Unknown]
  - Product storage error [Unknown]

NARRATIVE: CASE EVENT DATE: 20250101
